FAERS Safety Report 21042472 (Version 1)
Quarter: 2022Q3

REPORT INFORMATION
  Report Type: Spontaneous
  Country: US (occurrence: None)
  Receive Date: 20220702
  Receipt Date: 20220702
  Transmission Date: 20221026
  Serious: Yes (Other)
  Sender: FDA-Public Use
  Company Number: None

PATIENT
  Age: 65 Year
  Sex: Male

DRUGS (1)
  1. PAXLOVID [Suspect]
     Active Substance: NIRMATRELVIR\RITONAVIR
     Indication: COVID-19
     Dates: start: 20220627, end: 20220627

REACTIONS (3)
  - Dysgeusia [None]
  - Diarrhoea haemorrhagic [None]
  - Feeding disorder [None]

NARRATIVE: CASE EVENT DATE: 20220628
